FAERS Safety Report 6317059-7 (Version None)
Quarter: 2009Q3

REPORT INFORMATION
  Report Type: 
  Country: None (occurrence: None)
  Receive Date: 20090820
  Receipt Date: 20090803
  Transmission Date: 20100115
  Serious: Yes (Other)
  Sender: FDA-Public Use
  Company Number: US-PFIZER INC-2008002275

PATIENT
  Sex: Female

DRUGS (1)
  1. CHANTIX [Suspect]

REACTIONS (7)
  - DEPRESSION [None]
  - FALL [None]
  - GRAND MAL CONVULSION [None]
  - HAND FRACTURE [None]
  - PANIC ATTACK [None]
  - PSORIASIS [None]
  - WRIST FRACTURE [None]
